FAERS Safety Report 6982083-8 (Version None)
Quarter: 2010Q3

REPORT INFORMATION
  Report Type: 
  Country: None (occurrence: None)
  Receive Date: 20100909
  Receipt Date: 20100825
  Transmission Date: 20110219
  Serious: Yes (Other)
  Sender: FDA-Public Use
  Company Number: ENT-2010-0164

PATIENT
  Age: 75 Year
  Sex: Male

DRUGS (5)
  1. COMTAN [Suspect]
     Indication: DRUG EFFECT DECREASED
     Dosage: 100 MG DAILY ORAL,200 MG, ORAL
     Route: 048
     Dates: start: 20090313, end: 20090415
  2. COMTAN [Suspect]
     Indication: PARKINSON'S DISEASE
     Dosage: 100 MG DAILY ORAL,200 MG, ORAL
     Route: 048
     Dates: start: 20090313, end: 20090415
  3. COMTAN [Suspect]
     Indication: DRUG EFFECT DECREASED
     Dosage: 100 MG DAILY ORAL,200 MG, ORAL
     Route: 048
     Dates: start: 20090416, end: 20090604
  4. COMTAN [Suspect]
     Indication: PARKINSON'S DISEASE
     Dosage: 100 MG DAILY ORAL,200 MG, ORAL
     Route: 048
     Dates: start: 20090416, end: 20090604
  5. LEVODOPA-CARBIPOPA [Concomitant]

REACTIONS (1)
  - HALLUCINATION, VISUAL [None]
